FAERS Safety Report 8621674-5 (Version None)
Quarter: 2012Q3

REPORT INFORMATION
  Report Type: 
  Country: None (occurrence: None)
  Receive Date: 20120821
  Receipt Date: 20120821
  Transmission Date: 20120928
  Serious: Yes (Other)
  Sender: FDA-Public Use
  Company Number: None

PATIENT
  Age: 52 Year
  Sex: Male
  Weight: 64.8644 kg

DRUGS (1)
  1. ABILIFY [Suspect]
     Indication: MAJOR DEPRESSION
     Dosage: 10MG ONCE A DAY PO
     Route: 048
     Dates: start: 20120813, end: 20120817

REACTIONS (6)
  - FATIGUE [None]
  - VISION BLURRED [None]
  - INSOMNIA [None]
  - AKATHISIA [None]
  - CONSTIPATION [None]
  - RESTLESSNESS [None]
